FAERS Safety Report 4707129-9 (Version None)
Quarter: 2005Q3

REPORT INFORMATION
  Report Type: 
  Country: None (occurrence: None)
  Receive Date: 20050706
  Receipt Date: 20050627
  Transmission Date: 20060218
  Serious: Yes (Other)
  Sender: FDA-Public Use
  Company Number: FR-ROCHE-408996

PATIENT
  Age: 34 Year
  Sex: Male

DRUGS (4)
  1. ROACCUTANE [Suspect]
     Indication: ACNE
     Route: 048
     Dates: start: 20050315
  2. ROACCUTANE [Suspect]
     Route: 048
     Dates: start: 20050115
  3. CURACNE [Suspect]
     Indication: ACNE
     Route: 065
     Dates: start: 20050315
  4. CURACNE [Suspect]
     Route: 065
     Dates: start: 20050115

REACTIONS (1)
  - PANCYTOPENIA [None]
